FAERS Safety Report 8045761-8 (Version None)
Quarter: 2012Q1

REPORT INFORMATION
  Report Type: 
  Country: None (occurrence: None)
  Receive Date: 20120110
  Receipt Date: 20111227
  Transmission Date: 20120608
  Serious: Yes (Other)
  Sender: FDA-Public Use
  Company Number: 2011MA018138

PATIENT
  Age: 47 Year
  Sex: Female

DRUGS (4)
  1. UNUCLEOSIDE REVERSE TRANSCRIPTASE INHIBITORS [Suspect]
     Indication: URTICARIA
  2. TRIAMCINOLONE ACETONIDE [Suspect]
     Indication: INTERVERTEBRAL DISC PROTRUSION
     Dosage: 80 MG; 3X; ED
     Route: 008
  3. PROTEASE INHIBITOR [Suspect]
     Indication: URTICARIA
  4. RITONAVIR [Suspect]
     Indication: URTICARIA

REACTIONS (1)
  - CUSHING'S SYNDROME [None]
